FAERS Safety Report 7540998-6 (Version None)
Quarter: 2011Q2

REPORT INFORMATION
  Report Type: 
  Country: None (occurrence: None)
  Receive Date: 20110610
  Receipt Date: 20110603
  Transmission Date: 20111010
  Serious: Yes (Disabling, Other)
  Sender: FDA-Public Use
  Company Number: US-TEVA-284745USA

PATIENT
  Sex: Male

DRUGS (2)
  1. METOCLOPRAMIDE [Suspect]
     Indication: ABDOMINAL DISTENSION
  2. METOCLOPRAMIDE [Suspect]

REACTIONS (9)
  - TARDIVE DYSKINESIA [None]
  - TREMOR [None]
  - SPEECH DISORDER [None]
  - PARKINSON'S DISEASE [None]
  - NERVOUS SYSTEM DISORDER [None]
  - DYSTONIA [None]
  - EYE MOVEMENT DISORDER [None]
  - DYSKINESIA [None]
  - EXTRAPYRAMIDAL DISORDER [None]
